FAERS Safety Report 4974560-6 (Version None)
Quarter: 2006Q1

REPORT INFORMATION
  Report Type: 
  Country: None (occurrence: None)
  Receive Date: 20060215
  Receipt Date: 20050125
  Transmission Date: 20060701
  Serious: Yes (Other)
  Sender: FDA-Public Use
  Company Number: PROG00205000233

PATIENT
  Age: 47 Year
  Sex: Female

DRUGS (7)
  1. PROMETRIUM [Suspect]
     Indication: HORMONE REPLACEMENT THERAPY
     Dosage: DAILY ORAL
     Route: 048
     Dates: start: 19990101, end: 20010101
  2. ESTRATAB [Suspect]
     Indication: HORMONE REPLACEMENT THERAPY
     Dosage: DAILY ORAL
     Route: 048
     Dates: start: 19990101, end: 19990101
  3. ESTRATEST [Suspect]
     Indication: HORMONE REPLACEMENT THERAPY
     Dosage: DAILY ORAL
     Route: 048
     Dates: start: 19990101, end: 19990101
  4. PROVERA [Suspect]
     Indication: HORMONE REPLACEMENT THERAPY
     Dosage: DAILY ORAL
     Route: 048
     Dates: start: 19990101, end: 19990101
  5. MEDROXYPROGESTERONE [Suspect]
     Indication: HORMONE REPLACEMENT THERAPY
     Dosage: DAILY ORAL
     Route: 048
     Dates: start: 20000101, end: 20000101
  6. PREMARIN [Suspect]
     Indication: HORMONE REPLACEMENT THERAPY
     Dosage: DAILY ORAL
     Route: 048
     Dates: start: 19990101, end: 20010101
  7. PREMPHASE (PREMARIN;CYCRIN 14/14) [Suspect]
     Indication: HORMONE REPLACEMENT THERAPY
     Dosage: DAILY ORAL
     Route: 048
     Dates: start: 20020101, end: 20020101

REACTIONS (1)
  - BREAST CANCER [None]
